FAERS Safety Report 13634532 (Version 1)
Quarter: 2017Q2

REPORT INFORMATION
  Report Type: Spontaneous
  Country: US (occurrence: US)
  Receive Date: 20170531
  Receipt Date: 20170531
  Transmission Date: 20170830
  Serious: No
  Sender: FDA-Public Use
  Company Number: US-ASTELLAS-1636401

PATIENT
  Age: 63 Year
  Sex: Female

DRUGS (9)
  1. CLONAZEPAM. [Concomitant]
     Active Substance: CLONAZEPAM
  2. PRAVACHOL [Concomitant]
     Active Substance: PRAVASTATIN SODIUM
  3. TARCEVA [Suspect]
     Active Substance: ERLOTINIB HYDROCHLORIDE
     Dosage: TAKES 2 TABLETS DAILY
     Route: 048
  4. REMERON [Concomitant]
     Active Substance: MIRTAZAPINE
  5. TARCEVA [Suspect]
     Active Substance: ERLOTINIB HYDROCHLORIDE
     Indication: LUNG NEOPLASM MALIGNANT
     Route: 048
     Dates: start: 20150821
  6. COZAAR [Concomitant]
     Active Substance: LOSARTAN POTASSIUM
  7. FEMARA [Concomitant]
     Active Substance: LETROZOLE
  8. ZYRTEC [Concomitant]
     Active Substance: CETIRIZINE HYDROCHLORIDE
  9. IMODIUM AD [Concomitant]
     Active Substance: LOPERAMIDE HYDROCHLORIDE

REACTIONS (12)
  - Decreased appetite [Unknown]
  - Laryngitis [Unknown]
  - Abdominal pain upper [Unknown]
  - Rash [Unknown]
  - Eye irritation [Unknown]
  - Headache [Unknown]
  - Skin disorder [Recovering/Resolving]
  - Diarrhoea [Recovering/Resolving]
  - Nail bed bleeding [Unknown]
  - Dry eye [Unknown]
  - Dry skin [Unknown]
  - Eczema [Unknown]

NARRATIVE: CASE EVENT DATE: 20150918
